FAERS Safety Report 8432804-2 (Version None)
Quarter: 2012Q2

REPORT INFORMATION
  Report Type: 
  Country: None (occurrence: None)
  Receive Date: 20120613
  Receipt Date: 20120606
  Transmission Date: 20120825
  Serious: Yes (Disabling)
  Sender: FDA-Public Use
  Company Number: DK-B.I. PHARMACEUTICALS,INC./RIDGEFIELD-2012-SW-00466DB

PATIENT
  Sex: Male
  Weight: 105 kg

DRUGS (5)
  1. METOPROLOLSUCCINAT [Concomitant]
     Indication: ATRIAL FIBRILLATION
     Dosage: 100 MG
     Route: 048
     Dates: start: 20120201
  2. PRADAXA [Suspect]
     Indication: ATRIAL FIBRILLATION
     Dosage: 300 MG
     Route: 048
     Dates: start: 20120225, end: 20120527
  3. SIMVASTATIN [Concomitant]
     Indication: HYPERCHOLESTEROLAEMIA
     Dosage: 40 MG
     Route: 048
     Dates: start: 20120201
  4. FLECAINID [Concomitant]
     Indication: ATRIAL FIBRILLATION
     Dosage: 200 MG
     Route: 048
     Dates: start: 20120501
  5. METFORMIN HCL [Concomitant]
     Indication: DIABETES MELLITUS
     Dates: start: 20120201

REACTIONS (2)
  - CEREBRAL INFARCTION [None]
  - DRUG INEFFECTIVE [None]
